FAERS Safety Report 5311381-9 (Version None)
Quarter: 2007Q2

REPORT INFORMATION
  Report Type: 
  Country: None (occurrence: None)
  Receive Date: 20070430
  Receipt Date: 20070424
  Transmission Date: 20071010
  Serious: Yes (Life-Threatening, Hospitalization)
  Sender: FDA-Public Use
  Company Number: PHBS2007JP03073

PATIENT
  Age: 69 Year
  Sex: Male

DRUGS (10)
  1. NEORAL [Suspect]
     Indication: CHRONIC INFLAMMATORY DEMYELINATING POLYRADICULONEUROPATHY
     Dosage: 50 MG/DAY
     Route: 048
     Dates: start: 20061212, end: 20070103
  2. PREDONINE [Suspect]
     Indication: CHRONIC INFLAMMATORY DEMYELINATING POLYRADICULONEUROPATHY
     Dosage: 25 MG/D
     Route: 048
     Dates: start: 20061026, end: 20070126
  3. BASEN [Concomitant]
     Dosage: 0.9 MG/D
     Route: 048
  4. BONALON [Concomitant]
     Dosage: 5 MG/D
     Route: 048
  5. CYANOCOBALAMIN [Concomitant]
     Dosage: 1500 UG/D
     Route: 048
  6. TOCOPHERYL NICOTINATE [Concomitant]
     Dosage: 600 MG/D
     Route: 048
  7. GASTER D [Concomitant]
     Dosage: 40 MG/D
     Route: 048
  8. PURSENNID [Concomitant]
     Dosage: 24 MG/D
     Route: 048
  9. MAGNESIUM OXIDE [Concomitant]
     Route: 048
  10. SILECE [Concomitant]
     Dosage: 1 MG/D
     Route: 048

REACTIONS (7)
  - AORTIC ANEURYSM [None]
  - C-REACTIVE PROTEIN INCREASED [None]
  - DIARRHOEA [None]
  - MALAISE [None]
  - PYREXIA [None]
  - SALMONELLOSIS [None]
  - VOMITING [None]
